FAERS Safety Report 23526307 (Version 1)
Quarter: 2024Q1

REPORT INFORMATION
  Report Type: Spontaneous
  Country: FR (occurrence: FR)
  Receive Date: 20240215
  Receipt Date: 20240215
  Transmission Date: 20240410
  Serious: Yes (Death, Other)
  Sender: FDA-Public Use
  Company Number: None

PATIENT
  Age: 72 Year
  Sex: Male

DRUGS (4)
  1. LOVENOX [Suspect]
     Active Substance: ENOXAPARIN SODIUM
     Indication: Anticoagulant therapy
     Dosage: 16000 IU, QD
     Route: 058
     Dates: start: 20240105, end: 20240108
  2. HEPARIN CALCIUM [Suspect]
     Active Substance: HEPARIN CALCIUM
     Indication: Anticoagulant therapy
     Dosage: 20000 IU, QD
     Route: 058
     Dates: start: 20231226, end: 20240101
  3. INNOHEP [Suspect]
     Active Substance: TINZAPARIN SODIUM
     Indication: Anticoagulant therapy
     Dosage: 175 IU/KG, QD
     Route: 058
     Dates: start: 20231226, end: 20231229
  4. HEPARIN SODIUM [Suspect]
     Active Substance: HEPARIN SODIUM
     Indication: Anticoagulant therapy
     Dosage: 30000 IU
     Route: 042
     Dates: start: 20240109, end: 20240110

REACTIONS (1)
  - Heparin-induced thrombocytopenia [Fatal]
